FAERS Safety Report 18313505 (Version 1)
Quarter: 2020Q3

REPORT INFORMATION
  Report Type: Report from Study
  Country: BR (occurrence: BR)
  Receive Date: 20200925
  Receipt Date: 20200925
  Transmission Date: 20201103
  Serious: Yes (Other)
  Sender: FDA-Public Use
  Company Number: BR-BRISTOL-MYERS SQUIBB COMPANY-BMS-2020-077407

PATIENT
  Age: 48 Year
  Sex: Female

DRUGS (1)
  1. ABATACEPT [Suspect]
     Active Substance: ABATACEPT
     Indication: RHEUMATOID ARTHRITIS
     Dosage: TWO 250MG VIALS, MONTHLY
     Route: 042

REACTIONS (8)
  - Chest pain [Unknown]
  - Swelling [Unknown]
  - Inflammation [Recovered/Resolved]
  - Arthropathy [Recovered/Resolved]
  - Gait inability [Recovered/Resolved]
  - Arthralgia [Recovered/Resolved]
  - Joint swelling [Unknown]
  - Nervousness [Unknown]

NARRATIVE: CASE EVENT DATE: 201811
